FAERS Safety Report 25424029 (Version 1)
Quarter: 2025Q2

REPORT INFORMATION
  Report Type: Report from Study
  Country: US (occurrence: US)
  Receive Date: 20250611
  Receipt Date: 20250611
  Transmission Date: 20250716
  Serious: Yes (Hospitalization)
  Sender: ASCENDIS PHARMA
  Company Number: US-ASCENDIS PHARMA-2025US009780

PATIENT

DRUGS (1)
  1. PALOPEGTERIPARATIDE [Suspect]
     Active Substance: PALOPEGTERIPARATIDE
     Indication: Product used for unknown indication
     Route: 058

REACTIONS (2)
  - Blood potassium decreased [Unknown]
  - Blood calcium increased [Unknown]
